FAERS Safety Report 23072796 (Version 2)
Quarter: 2024Q1

REPORT INFORMATION
  Report Type: Spontaneous
  Country: US (occurrence: US)
  Receive Date: 20231017
  Receipt Date: 20240116
  Transmission Date: 20240410
  Serious: Yes (Other)
  Sender: FDA-Public Use
  Company Number: US-BRISTOL-MYERS SQUIBB COMPANY-2023-122485

PATIENT
  Age: 72 Year
  Sex: Female

DRUGS (1)
  1. ORENCIA [Suspect]
     Active Substance: ABATACEPT
     Indication: Product used for unknown indication
     Dosage: DOSE : UNAVAILABLE;FREQ : TAKE 1 SHOT UNDER SKIN ONCE A WEEK, (INJECT 125 MG SUBCUTANEOUSLY ONCE EVE
     Route: 058

REACTIONS (1)
  - Neoplasm malignant [Unknown]
